FAERS Safety Report 8852605 (Version 3)
Quarter: 2013Q1

REPORT INFORMATION
  Report Type: Spontaneous
  Country: CO (occurrence: CO)
  Receive Date: 20121022
  Receipt Date: 20130121
  Transmission Date: 20140127
  Serious: Yes (Death, Hospitalization, Other)
  Sender: FDA-Public Use
  Company Number: CO-ELI_LILLY_AND_COMPANY-CO201210003971

PATIENT
  Age: 68 Year
  Sex: Female

DRUGS (11)
  1. FORTEO [Suspect]
     Indication: OSTEOPOROSIS
     Dosage: 20 UG, QD
     Route: 058
     Dates: start: 201205
  2. AZATHIOPRINE [Concomitant]
  3. MEDROL [Concomitant]
  4. VITAMIN D [Concomitant]
  5. ZALDIAR [Concomitant]
  6. TIROXIN [Concomitant]
  7. NIFEDIPINE [Concomitant]
  8. SILDENAFIL [Concomitant]
  9. CELEBREX [Concomitant]
  10. ESOMEPRAZOLE [Concomitant]
  11. RITUXIMAB [Concomitant]
     Dosage: UNK
     Dates: start: 201206

REACTIONS (4)
  - Aortic aneurysm rupture [Fatal]
  - Aortic thrombosis [Unknown]
  - Arteriosclerosis [Unknown]
  - Diverticulitis [Not Recovered/Not Resolved]
